FAERS Safety Report 10170703 (Version 3)
Quarter: 2014Q3

REPORT INFORMATION
  Report Type: Spontaneous
  Country: FR (occurrence: FR)
  Receive Date: 20140514
  Receipt Date: 20140901
  Transmission Date: 20150326
  Serious: Yes (Death, Hospitalization, Other)
  Sender: FDA-Public Use
  Company Number: FR-BIOGENIDEC-2014BI044331

PATIENT
  Age: 59 Year
  Sex: Female

DRUGS (1)
  1. AVONEX [Suspect]
     Active Substance: INTERFERON BETA-1A
     Indication: MULTIPLE SCLEROSIS
     Route: 030
     Dates: start: 200304, end: 200612

REACTIONS (4)
  - Cardiogenic shock [Fatal]
  - Skin toxicity [Unknown]
  - Cardiac failure [Fatal]
  - Synovial sarcoma [Unknown]

NARRATIVE: CASE EVENT DATE: 201312
